FAERS Safety Report 9300125 (Version 1)
Quarter: 2013Q2

REPORT INFORMATION
  Report Type: Report from Study
  Country: SE (occurrence: SE)
  Receive Date: 20130521
  Receipt Date: 20130524
  Transmission Date: 20140414
  Serious: Yes (Hospitalization)
  Sender: FDA-Public Use
  Company Number: SE-BAYER-2013-062424

PATIENT
  Age: 67 Year
  Sex: Male
  Weight: 96 kg

DRUGS (10)
  1. ALPHARADIN [Suspect]
     Indication: PROSTATE CANCER METASTATIC
     Dosage: 50KBQ/KG
     Route: 042
     Dates: start: 20130222, end: 20130222
  2. ALPHARADIN [Suspect]
     Indication: PROSTATE CANCER METASTATIC
     Dosage: 50KBQ/KG
     Route: 042
     Dates: start: 20130321, end: 20130321
  3. ALPHARADIN [Suspect]
     Indication: PROSTATE CANCER METASTATIC
     Dosage: 50KBQ/KG
     Route: 042
     Dates: start: 20130418, end: 20130418
  4. ENANTON [Concomitant]
     Indication: PROSTATE CANCER
     Dosage: 11.25MG
     Route: 058
     Dates: start: 20130204
  5. METOPROLOL [Concomitant]
     Indication: HYPERTENSION
     Dosage: 50MG
     Route: 048
     Dates: start: 20130211
  6. ENAPRIL [Concomitant]
     Indication: HYPERTENSION
     Dosage: 5MG
     Route: 048
     Dates: start: 20130215
  7. SIMVASTATIN [Concomitant]
     Indication: HYPERTENSION
     Dosage: 20MG
     Route: 048
     Dates: start: 20130220
  8. DOLCONTIN [Concomitant]
     Indication: BONE PAIN
     Dosage: 20MG
     Route: 048
     Dates: start: 20130218
  9. BETAMED [Concomitant]
     Indication: BONE PAIN
     Dosage: 3MG
     Route: 048
     Dates: start: 20130218
  10. MORPH [Concomitant]
     Indication: PROSTATIC PAIN
     Dosage: 10MG
     Route: 048
     Dates: start: 20130222

REACTIONS (1)
  - Constipation [Recovering/Resolving]
